FAERS Safety Report 15996006 (Version 2)
Quarter: 2019Q2

REPORT INFORMATION
  Report Type: Spontaneous
  Country: US (occurrence: US)
  Receive Date: 20190222
  Receipt Date: 20190418
  Transmission Date: 20190711
  Serious: Yes (Other)
  Sender: FDA-Public Use
  Company Number: US-009507513-1902USA004854

PATIENT
  Age: 74 Year
  Sex: Male

DRUGS (2)
  1. TACROLIMUS. [Concomitant]
     Active Substance: TACROLIMUS
     Dosage: UNK
  2. INVANZ [Suspect]
     Active Substance: ERTAPENEM SODIUM
     Indication: KLEBSIELLA INFECTION
     Dosage: 0.5 GRAM, ON MONDAY, WEDNESDAY, AND FRIDAY WITH DIALYSIS
     Route: 042
     Dates: start: 2018, end: 2018

REACTIONS (6)
  - Personality change [Unknown]
  - Off label use [Unknown]
  - Mental status changes [Recovered/Resolved]
  - Neurotoxicity [Unknown]
  - Disturbance in attention [Unknown]
  - Laryngeal tremor [Unknown]

NARRATIVE: CASE EVENT DATE: 2018
